FAERS Safety Report 4866430-9 (Version None)
Quarter: 2005Q4

REPORT INFORMATION
  Report Type: 
  Country: None (occurrence: None)
  Receive Date: 20051227
  Receipt Date: 20051129
  Transmission Date: 20060501
  Serious: Yes (Hospitalization)
  Sender: FDA-Public Use
  Company Number: US-MERCK-0511USA04585

PATIENT
  Age: 67 Year
  Sex: Female
  Weight: 58 kg

DRUGS (1)
  1. VIOXX [Suspect]
     Indication: ARTHRITIS
     Route: 048
     Dates: start: 20010213, end: 20040601

REACTIONS (18)
  - ANXIETY [None]
  - ASTHENIA [None]
  - CEREBROVASCULAR ACCIDENT [None]
  - CHEST PAIN [None]
  - CYSTITIS HAEMORRHAGIC [None]
  - DEPRESSION [None]
  - DIZZINESS [None]
  - HAEMORRHOIDAL HAEMORRHAGE [None]
  - HYPOMAGNESAEMIA [None]
  - HYPONATRAEMIA [None]
  - HYPOTHYROIDISM [None]
  - INTESTINAL FUNCTIONAL DISORDER [None]
  - IRON DEFICIENCY ANAEMIA [None]
  - MUSCULOSKELETAL CHEST PAIN [None]
  - PELVIC PERITONEAL ADHESIONS [None]
  - TRANSIENT ISCHAEMIC ATTACK [None]
  - URINARY RETENTION [None]
  - URINARY TRACT INFECTION [None]
